FAERS Safety Report 12697042 (Version 1)
Quarter: 2016Q3

REPORT INFORMATION
  Report Type: Spontaneous
  Country: US (occurrence: None)
  Receive Date: 20160829
  Receipt Date: 20160829
  Transmission Date: 20161109
  Serious: Yes (Disabling)
  Sender: FDA-Public Use
  Company Number: None

PATIENT
  Age: 42 Year
  Sex: Female
  Weight: 55.34 kg

DRUGS (5)
  1. VITAMIN D [Concomitant]
     Active Substance: CHOLECALCIFEROL
  2. FLAXSEED [Concomitant]
     Active Substance: FLAX SEED
  3. VITAMIN C [Concomitant]
     Active Substance: ASCORBIC ACID
  4. CLOBETASOL PROPIONATE. [Suspect]
     Active Substance: CLOBETASOL PROPIONATE
     Indication: DRY SKIN
     Dosage: AT BEDTIME APPLIED TO A SURFACE, USUALLY THE SKIN
     Dates: start: 20150201, end: 20160120
  5. OMEGA 3 [Concomitant]
     Active Substance: OMEGA-3 FATTY ACIDS

REACTIONS (6)
  - Pruritus [None]
  - Burning sensation [None]
  - Eye disorder [None]
  - Drug ineffective [None]
  - Erythema [None]
  - Eczema [None]

NARRATIVE: CASE EVENT DATE: 20160402
